FAERS Safety Report 11654887 (Version 3)
Quarter: 2015Q4

REPORT INFORMATION
  Report Type: Spontaneous
  Country: JP (occurrence: JP)
  Receive Date: 20151023
  Receipt Date: 20151228
  Transmission Date: 20160304
  Serious: Yes (Hospitalization, Other)
  Sender: FDA-Public Use
  Company Number: JP-VIIV HEALTHCARE LIMITED-JP2015JPN118029

PATIENT
  Age: 62 Year
  Sex: Male

DRUGS (18)
  1. STOCRIN [Concomitant]
     Active Substance: EFAVIRENZ
     Indication: HIV INFECTION
     Dosage: 600 MG, UNK
     Dates: start: 200105
  2. TRUVADA [Concomitant]
     Active Substance: EMTRICITABINE\TENOFOVIR DISOPROXIL FUMARATE
     Indication: HIV INFECTION
     Dosage: UNK
     Dates: start: 200407, end: 20061030
  3. JANUVIA [Concomitant]
     Active Substance: SITAGLIPTIN PHOSPHATE
  4. RETROVIR [Suspect]
     Active Substance: ZIDOVUDINE
     Indication: HIV INFECTION
     Dosage: UNK
     Route: 048
     Dates: start: 200702
  5. TIVICAY [Suspect]
     Active Substance: DOLUTEGRAVIR SODIUM
     Indication: HIV INFECTION
     Dosage: UNK
     Route: 048
     Dates: start: 20141014
  6. VIREAD [Concomitant]
     Active Substance: TENOFOVIR DISOPROXIL FUMARATE
  7. EUGLUCON [Concomitant]
     Active Substance: GLYBURIDE
  8. EPIVIR [Suspect]
     Active Substance: LAMIVUDINE
     Indication: HIV INFECTION
     Dosage: UNK
     Route: 048
     Dates: start: 19990427, end: 20061030
  9. ISENTRESS [Concomitant]
     Active Substance: RALTEGRAVIR POTASSIUM
     Indication: HIV INFECTION
     Dosage: UNK
     Dates: start: 20120507
  10. URSO [Concomitant]
     Active Substance: URSODIOL
  11. EDURANT [Concomitant]
     Active Substance: RILPIVIRINE HYDROCHLORIDE
     Indication: HIV INFECTION
     Dosage: UNK
     Dates: start: 20121105
  12. ZERIT [Concomitant]
     Active Substance: STAVUDINE
     Indication: HIV INFECTION
     Dosage: UNK
     Dates: start: 19990427, end: 200407
  13. TRUVADA [Concomitant]
     Active Substance: EMTRICITABINE\TENOFOVIR DISOPROXIL FUMARATE
     Dosage: UNK
     Dates: start: 200702
  14. LIVALO [Concomitant]
     Active Substance: PITAVASTATIN CALCIUM
  15. VIRACEPT [Concomitant]
     Active Substance: NELFINAVIR MESYLATE
     Indication: HIV INFECTION
     Dosage: UNK
     Route: 048
     Dates: start: 19990427, end: 200105
  16. STOCRIN [Concomitant]
     Active Substance: EFAVIRENZ
     Dosage: 400 MG, UNK
  17. STOCRIN [Concomitant]
     Active Substance: EFAVIRENZ
     Dosage: 200 MG, UNK
     Dates: end: 20061002
  18. STOCRIN [Concomitant]
     Active Substance: EFAVIRENZ
     Dosage: UNK
     Dates: start: 200702

REACTIONS (10)
  - Red blood cell count decreased [Unknown]
  - Hypercholesterolaemia [Unknown]
  - Blood lactic acid increased [Unknown]
  - Chest discomfort [Unknown]
  - Supraventricular extrasystoles [Recovering/Resolving]
  - Dyspnoea [Recovering/Resolving]
  - Cardiac failure congestive [Recovering/Resolving]
  - Chest discomfort [Recovering/Resolving]
  - Lipodystrophy acquired [Unknown]
  - Tachycardia [Recovering/Resolving]

NARRATIVE: CASE EVENT DATE: 2011
